FAERS Safety Report 25373070 (Version 1)
Quarter: 2025Q2

REPORT INFORMATION
  Report Type: Report from Study
  Country: US (occurrence: US)
  Receive Date: 20250529
  Receipt Date: 20250529
  Transmission Date: 20250716
  Serious: Yes (Other)
  Sender: ACADIA PHARMACEUTICALS
  Company Number: US-ACADIA PHARMACEUTICALS INC.-ACA-2025-PIM-006315

PATIENT
  Sex: Male

DRUGS (18)
  1. NUPLAZID [Suspect]
     Active Substance: PIMAVANSERIN TARTRATE
     Indication: Parkinson^s disease
     Dosage: 34 MILLIGRAM, QD
     Route: 048
     Dates: start: 20250206
  2. ACYCLOVIR [Concomitant]
     Active Substance: ACYCLOVIR
  3. ALFUZOSIN [Concomitant]
     Active Substance: ALFUZOSIN
  4. CARBIDOPA LEVODOPA [Concomitant]
     Active Substance: CARBIDOPA\LEVODOPA
  5. DESMOPRESSIN [Concomitant]
     Active Substance: DESMOPRESSIN
  6. FINASTERIDE [Concomitant]
     Active Substance: FINASTERIDE
  7. FLUDROCORTISONE [Concomitant]
     Active Substance: FLUDROCORTISONE
  8. GOCOVRI [Concomitant]
     Active Substance: AMANTADINE
  9. LEVETIRACETAM [Concomitant]
     Active Substance: LEVETIRACETAM
  10. LIPITOR [Concomitant]
     Active Substance: ATORVASTATIN CALCIUM
  11. MIDODRINE [Concomitant]
     Active Substance: MIDODRINE
  12. VITAMINS [Concomitant]
     Active Substance: VITAMINS
  13. NEUPRO [Concomitant]
     Active Substance: ROTIGOTINE
  14. PANTOPRAZOLE [Concomitant]
     Active Substance: PANTOPRAZOLE
  15. PEPCID AC [Concomitant]
     Active Substance: FAMOTIDINE
  16. MINERALS\VITAMINS [Concomitant]
     Active Substance: MINERALS\VITAMINS
  17. RASAGILINE [Concomitant]
     Active Substance: RASAGILINE
  18. VITAMIN D3 [Concomitant]
     Active Substance: CHOLECALCIFEROL

REACTIONS (1)
  - Hallucination [Unknown]
